FAERS Safety Report 18632578 (Version 1)
Quarter: 2020Q4

REPORT INFORMATION
  Report Type: Other
  Country: NL (occurrence: SE)
  Receive Date: 20201218
  Receipt Date: 20201218
  Transmission Date: 20210114
  Serious: Yes (Other)
  Sender: FDA-Public Use
  Company Number: SE-ASTELLAS-2020US044256

PATIENT
  Age: 50 Year
  Sex: Female

DRUGS (9)
  1. REGADENOSON [Interacting]
     Active Substance: REGADENOSON
     Indication: DRUG PROVOCATION TEST
     Dosage: UNK UNK, SINGLE.
     Route: 042
  2. REGADENOSON [Interacting]
     Active Substance: REGADENOSON
     Indication: DRUG PROVOCATION TEST
     Dosage: UNK UNK, SINGLE.
     Route: 042
  3. REGADENOSON [Interacting]
     Active Substance: REGADENOSON
     Indication: SCAN MYOCARDIAL PERFUSION
  4. REGADENOSON [Interacting]
     Active Substance: REGADENOSON
     Indication: DRUG PROVOCATION TEST
     Dosage: UNK UNK, SINGLE.
     Route: 042
  5. REGADENOSON [Interacting]
     Active Substance: REGADENOSON
     Indication: SCAN MYOCARDIAL PERFUSION
  6. SANDIMMUN [Interacting]
     Active Substance: CYCLOSPORINE
     Indication: PRODUCT USED FOR UNKNOWN INDICATION
     Dosage: UNK UNK, UNKNOWN FREQ.
     Route: 048
  7. REGADENOSON [Interacting]
     Active Substance: REGADENOSON
     Indication: SCAN MYOCARDIAL PERFUSION
  8. REGADENOSON [Suspect]
     Active Substance: REGADENOSON
     Indication: DRUG PROVOCATION TEST
     Dosage: UNK UNK, SINGLE.
     Route: 042
  9. REGADENOSON [Interacting]
     Active Substance: REGADENOSON
     Indication: SCAN MYOCARDIAL PERFUSION

REACTIONS (5)
  - Atrioventricular block [Recovered/Resolved]
  - Malaise [Recovered/Resolved]
  - Tachycardia [Recovered/Resolved]
  - Nausea [Recovered/Resolved]
  - Drug interaction [Unknown]

NARRATIVE: CASE EVENT DATE: 20200930
